FAERS Safety Report 6107387-2 (Version None)
Quarter: 2009Q1

REPORT INFORMATION
  Report Type: 
  Country: None (occurrence: None)
  Receive Date: 20090309
  Receipt Date: 20090226
  Transmission Date: 20090719
  Serious: Yes (Other)
  Sender: FDA-Public Use
  Company Number: GB-NOVOPROD-283220

PATIENT
  Age: 15 Year
  Sex: Female

DRUGS (5)
  1. NORDITROPIN [Suspect]
     Indication: DRUG USE FOR UNKNOWN INDICATION
     Dosage: 1.6 MG, QD
     Route: 058
     Dates: start: 20080512
  2. NORDITROPIN [Suspect]
     Dosage: 1.2 MG, QD
  3. NORDITROPIN [Suspect]
     Dosage: 1.3 MG, QD
  4. NORDITROPIN [Suspect]
     Dosage: .3 MG, QD
  5. METFORMIN HCL [Concomitant]
     Dosage: 1 G, QD
     Route: 048
     Dates: start: 20070719

REACTIONS (4)
  - DRUG DISPENSING ERROR [None]
  - DRUG PRESCRIBING ERROR [None]
  - GROWTH RETARDATION [None]
  - INCORRECT DOSE ADMINISTERED [None]
